FAERS Safety Report 23287138 (Version 1)
Quarter: 2023Q4

REPORT INFORMATION
  Report Type: Spontaneous
  Country: FR (occurrence: FR)
  Receive Date: 20231212
  Receipt Date: 20231212
  Transmission Date: 20240109
  Serious: Yes (Death, Other)
  Sender: FDA-Public Use
  Company Number: FR-JNJFOC-20230528309

PATIENT

DRUGS (1)
  1. ERDAFITINIB [Suspect]
     Active Substance: ERDAFITINIB
     Indication: Transitional cell carcinoma
     Route: 065

REACTIONS (5)
  - Death [Fatal]
  - Transitional cell carcinoma [Unknown]
  - Drug ineffective [Unknown]
  - Diarrhoea [Unknown]
  - Mucosal dryness [Unknown]
